FAERS Safety Report 4933103-3 (Version None)
Quarter: 2006Q1

REPORT INFORMATION
  Report Type: 
  Country: None (occurrence: None)
  Receive Date: 20060306
  Receipt Date: 20060223
  Transmission Date: 20060701
  Serious: Yes (Other)
  Sender: FDA-Public Use
  Company Number: US-KINGPHARMUSA00001-K200600259

PATIENT
  Age: 19 Year
  Sex: Male

DRUGS (4)
  1. SONATA [Suspect]
     Dosage: 60 TO 100 MG 2 OR 3 TIMES/MONTH
     Route: 045
     Dates: start: 20050201
  2. BENZODIAZEPINES [Concomitant]
  3. VALPROIC ACID [Concomitant]
     Indication: BIPOLAR I DISORDER
  4. ALCOHOL [Concomitant]

REACTIONS (4)
  - EUPHORIC MOOD [None]
  - HALLUCINATION [None]
  - INTENTIONAL DRUG MISUSE [None]
  - OVERDOSE [None]
